FAERS Safety Report 7012454-5 (Version None)
Quarter: 2010Q3

REPORT INFORMATION
  Report Type: 
  Country: None (occurrence: None)
  Receive Date: 20100924
  Receipt Date: 20100917
  Transmission Date: 20110219
  Serious: Yes (Hospitalization)
  Sender: FDA-Public Use
  Company Number: CA-ABBOTT-10P-028-0671706-00

PATIENT
  Sex: Female
  Weight: 51.302 kg

DRUGS (9)
  1. HUMIRA [Suspect]
     Indication: ANKYLOSING SPONDYLITIS
     Route: 058
     Dates: start: 20081016
  2. CELEXA [Concomitant]
     Indication: ANXIETY
     Route: 048
  3. CELEXA [Concomitant]
     Indication: DEPRESSION
  4. COVERSIL [Concomitant]
     Indication: BLOOD PRESSURE
     Route: 048
  5. CLONAZEPAM [Concomitant]
     Indication: INSOMNIA
     Route: 048
  6. NEXIUM [Concomitant]
     Indication: PRODUCT USED FOR UNKNOWN INDICATION
     Route: 048
  7. AMLODIPINE [Concomitant]
     Indication: BLOOD PRESSURE
     Route: 048
  8. MOBICOX [Concomitant]
     Indication: PRODUCT USED FOR UNKNOWN INDICATION
     Route: 048
  9. TYLENOL (CAPLET) [Concomitant]
     Indication: PRODUCT USED FOR UNKNOWN INDICATION
     Route: 048

REACTIONS (7)
  - ASTHENIA [None]
  - BLOOD ELECTROLYTES DECREASED [None]
  - DYSPNOEA [None]
  - HYPERTENSION [None]
  - MIGRAINE [None]
  - SKIN PAPILLOMA [None]
  - VOMITING [None]
